FAERS Safety Report 9503215 (Version 1)
Quarter: 2013Q3

REPORT INFORMATION
  Report Type: Spontaneous
  Country: US (occurrence: US)
  Receive Date: 20130906
  Receipt Date: 20130906
  Transmission Date: 20140515
  Serious: No
  Sender: FDA-Public Use
  Company Number: US-PFIZER INC-2013255269

PATIENT
  Age: 59 Year
  Sex: Male
  Weight: 88.44 kg

DRUGS (2)
  1. VIAGRA [Suspect]
     Indication: ERECTILE DYSFUNCTION
     Dosage: 100 MG, AS NEEDED
     Route: 048
     Dates: start: 20130903, end: 20130903
  2. VIAGRA [Suspect]
     Indication: PENILE CURVATURE

REACTIONS (1)
  - Drug ineffective [Unknown]
